FAERS Safety Report 10880849 (Version 3)
Quarter: 2015Q2

REPORT INFORMATION
  Report Type: Spontaneous
  Country: US (occurrence: US)
  Receive Date: 20150303
  Receipt Date: 20150427
  Transmission Date: 20150821
  Serious: Yes (Other)
  Sender: FDA-Public Use
  Company Number: US-AMGEN-USASL2015017791

PATIENT
  Age: 79 Year
  Sex: Female
  Weight: 68.27 kg

DRUGS (5)
  1. ULTRAM [Suspect]
     Active Substance: TRAMADOL HYDROCHLORIDE
     Indication: ARTHRALGIA
     Dosage: 50 MG, BID
     Route: 048
     Dates: start: 201502
  2. PROCRIT [Suspect]
     Active Substance: ERYTHROPOIETIN
     Indication: PLASMA CELL MYELOMA
     Dosage: 4000 UNIT OR 4500 UNITS, UNK
     Route: 058
     Dates: start: 20150218
  3. PROCRIT [Suspect]
     Active Substance: ERYTHROPOIETIN
     Indication: DYSPHAGIA
  4. NEUPOGEN [Suspect]
     Active Substance: FILGRASTIM
     Indication: PRODUCT USED FOR UNKNOWN INDICATION
     Dosage: UNK
     Route: 065
     Dates: start: 20150218
  5. ULTRACET [Suspect]
     Active Substance: ACETAMINOPHEN\TRAMADOL HYDROCHLORIDE
     Indication: PAIN
     Dosage: UNK
     Route: 048

REACTIONS (11)
  - Ear discomfort [Unknown]
  - Haemoptysis [Unknown]
  - Adverse event [Unknown]
  - Headache [Unknown]
  - Arthralgia [Not Recovered/Not Resolved]
  - Gait disturbance [Not Recovered/Not Resolved]
  - Sensory loss [Not Recovered/Not Resolved]
  - Hypoaesthesia [Unknown]
  - Epistaxis [Unknown]
  - Hearing impaired [Unknown]
  - Off label use [Unknown]

NARRATIVE: CASE EVENT DATE: 20150219
